FAERS Safety Report 8423577-8 (Version None)
Quarter: 2012Q2

REPORT INFORMATION
  Report Type: 
  Country: None (occurrence: None)
  Receive Date: 20120608
  Receipt Date: 20120601
  Transmission Date: 20120825
  Serious: Yes (Other)
  Sender: FDA-Public Use
  Company Number: FR-B.I. PHARMACEUTICALS,INC./RIDGEFIELD-2012-EU-02999GD

PATIENT
  Age: 19 Year
  Sex: Female

DRUGS (4)
  1. CLONIDINE [Suspect]
     Indication: NERVE BLOCK
  2. ROPIVACAINE HYDROCHLORIDE [Suspect]
     Indication: ANALGESIC THERAPY
  3. MIDAZOLAM [Concomitant]
     Indication: SEDATIVE THERAPY
     Dosage: PATIENTS RECEIVED INJECTIONS OF 1-2 MG
  4. BUPIVACAINE HCL [Suspect]
     Indication: NERVE BLOCK

REACTIONS (4)
  - PERONEAL NERVE INJURY [None]
  - PERIPHERAL NERVE INJURY [None]
  - HYPOAESTHESIA [None]
  - NEURALGIA [None]
